FAERS Safety Report 6912862-4 (Version None)
Quarter: 2010Q3

REPORT INFORMATION
  Report Type: 
  Country: None (occurrence: None)
  Receive Date: 20100806
  Receipt Date: 20090219
  Transmission Date: 20110219
  Serious: No
  Sender: FDA-Public Use
  Company Number: US-PFIZER INC-2009174484

PATIENT
  Sex: Female

DRUGS (3)
  1. VFEND [Suspect]
     Indication: INFECTION
     Dosage: 200 MG, 2X/DAY
     Route: 048
     Dates: start: 20090217
  2. LIPITOR [Concomitant]
  3. QVAR 40 [Concomitant]

REACTIONS (1)
  - VISUAL IMPAIRMENT [None]
